FAERS Safety Report 4983138-X (Version None)
Quarter: 2006Q2

REPORT INFORMATION
  Report Type: 
  Country: None (occurrence: None)
  Receive Date: 20060419
  Receipt Date: 20060407
  Transmission Date: 20061013
  Serious: Yes (Other)
  Sender: FDA-Public Use
  Company Number: GXKR2006EG02017

PATIENT
  Age: 6 Year
  Sex: Male

DRUGS (1)
  1. CURAM [Suspect]
     Indication: PYREXIA

REACTIONS (4)
  - ABDOMINAL PAIN LOWER [None]
  - ACUTE ABDOMEN [None]
  - DIARRHOEA [None]
  - VOMITING [None]
